FAERS Safety Report 8335037-3 (Version None)
Quarter: 2012Q2

REPORT INFORMATION
  Report Type: 
  Country: None (occurrence: None)
  Receive Date: 20120503
  Receipt Date: 20120430
  Transmission Date: 20120825
  Serious: Yes (Other)
  Sender: FDA-Public Use
  Company Number: PHHY2012BR037480

PATIENT
  Sex: Female

DRUGS (2)
  1. DIOVAN [Suspect]
     Dosage: 2 DF (160 MG ), DAILY
  2. DIOVAN [Suspect]
     Indication: HYPERTENSION
     Dosage: 1 DF (320 MG), DAILY
     Dates: end: 20110101

REACTIONS (3)
  - BLOOD PRESSURE INADEQUATELY CONTROLLED [None]
  - OCULAR HYPERAEMIA [None]
  - EYE HAEMORRHAGE [None]
